FAERS Safety Report 7655494-5 (Version None)
Quarter: 2011Q3

REPORT INFORMATION
  Report Type: 
  Country: None (occurrence: None)
  Receive Date: 20110804
  Receipt Date: 20110729
  Transmission Date: 20111222
  Serious: Yes (Hospitalization, Other)
  Sender: FDA-Public Use
  Company Number: US-ABBOTT-11P-163-0703105-00

PATIENT
  Sex: Female
  Weight: 70.37 kg

DRUGS (15)
  1. METOPROLOL TARTRATE [Concomitant]
     Indication: PRODUCT USED FOR UNKNOWN INDICATION
  2. VICODIN [Concomitant]
     Indication: ARTHRALGIA
  3. PRILOSEC [Concomitant]
     Indication: GASTROOESOPHAGEAL REFLUX DISEASE
  4. HUMIRA [Suspect]
  5. METHOTREXATE [Concomitant]
     Indication: RHEUMATOID ARTHRITIS
  6. CELEBREX [Concomitant]
     Indication: RHEUMATOID ARTHRITIS
  7. PREDNISONE [Concomitant]
     Indication: RHEUMATOID ARTHRITIS
  8. VITAMIN TAB [Concomitant]
     Indication: VITAMIN SUPPLEMENTATION
  9. ASPIRIN [Concomitant]
     Indication: PRODUCT USED FOR UNKNOWN INDICATION
  10. TRAMADOL HCL [Concomitant]
     Indication: ARTHRALGIA
  11. GLIPIZIDE [Concomitant]
     Indication: DIABETES MELLITUS
  12. LIPITOR [Concomitant]
     Indication: BLOOD CHOLESTEROL INCREASED
  13. MOTRIN [Concomitant]
     Indication: PAIN
  14. HUMIRA [Suspect]
     Indication: RHEUMATOID ARTHRITIS
     Dates: start: 20040101, end: 20080801
  15. TYLENOL-500 [Concomitant]
     Indication: ARTHRALGIA

REACTIONS (24)
  - SEPSIS [None]
  - RIB FRACTURE [None]
  - THROAT IRRITATION [None]
  - COELIAC ARTERY STENOSIS [None]
  - CYSTITIS [None]
  - UROSEPSIS [None]
  - FOOT OPERATION [None]
  - ABDOMINAL PAIN UPPER [None]
  - NASOPHARYNGITIS [None]
  - BLOOD GLUCOSE INCREASED [None]
  - CHEST X-RAY ABNORMAL [None]
  - LUNG NEOPLASM MALIGNANT [None]
  - COUGH [None]
  - MUCOSAL DISCOLOURATION [None]
  - FALL [None]
  - INFECTION [None]
  - GASTRIC DISORDER [None]
  - MESENTERIC VASCULAR INSUFFICIENCY [None]
  - DYSPHONIA [None]
  - ARTHRALGIA [None]
  - MESENTERIC OCCLUSION [None]
  - URETERIC OBSTRUCTION [None]
  - VOMITING [None]
  - PAINFUL RESPIRATION [None]
